FAERS Safety Report 25275192 (Version 2)
Quarter: 2025Q2

REPORT INFORMATION
  Report Type: Other
  Country: US (occurrence: US)
  Receive Date: 20250506
  Receipt Date: 20250516
  Transmission Date: 20250716
  Serious: No
  Sender: TRAVERE THERAPEUTICS
  Company Number: US-TRAVERE-2025TVT00553

PATIENT
  Age: 50 Year
  Sex: Female

DRUGS (2)
  1. FILSPARI [Suspect]
     Active Substance: SPARSENTAN
     Indication: IgA nephropathy
     Dosage: 1 TABLET, ONCE DAILY FOR DAYS 1-14
     Route: 048
     Dates: start: 20250327, end: 20250409
  2. FILSPARI [Suspect]
     Active Substance: SPARSENTAN
     Dosage: 2 TABLETS, ONCE DAILY ON DAYS 15-30
     Route: 048
     Dates: start: 20250410

REACTIONS (2)
  - Peripheral swelling [None]
  - Joint swelling [Unknown]
